FAERS Safety Report 7930503-4 (Version None)
Quarter: 2011Q4

REPORT INFORMATION
  Report Type: 
  Country: None (occurrence: None)
  Receive Date: 20111121
  Receipt Date: 20100505
  Transmission Date: 20120403
  Serious: Yes (Hospitalization)
  Sender: FDA-Public Use
  Company Number: PHHY2010TW72834

PATIENT
  Sex: Male

DRUGS (4)
  1. TASIGNA [Suspect]
     Dosage: 2 PILLS IN THE MORNING AND 1 PILL IN THE EVENING
     Route: 048
  2. SPRYCEL [Suspect]
     Dosage: 2 TABS (50MG)
     Route: 048
     Dates: start: 20100913
  3. HYALURONIC ACID [Concomitant]
  4. TASIGNA [Suspect]
     Indication: CHRONIC MYELOID LEUKAEMIA
     Dosage: 200 MG, BID

REACTIONS (8)
  - FATIGUE [None]
  - PNEUMONIA [None]
  - COUGH [None]
  - NASOPHARYNGITIS [None]
  - PYREXIA [None]
  - DRY SKIN [None]
  - RASH [None]
  - DECREASED APPETITE [None]
